FAERS Safety Report 5011862-1 (Version None)
Quarter: 2006Q2

REPORT INFORMATION
  Report Type: 
  Country: None (occurrence: None)
  Receive Date: 20060526
  Receipt Date: 20060517
  Transmission Date: 20061013
  Serious: Yes (Hospitalization)
  Sender: FDA-Public Use
  Company Number: KR-SANOFI-SYNTHELABO-A01200603725

PATIENT
  Age: 879 Month
  Sex: Female
  Weight: 58.4 kg

DRUGS (6)
  1. MOLSIDOMINE [Concomitant]
     Indication: ANGINA PECTORIS
     Route: 048
     Dates: start: 20050916
  2. SIMVASTATIN [Concomitant]
     Indication: HYPERLIPIDAEMIA
     Route: 048
     Dates: start: 20050509
  3. HYDROCHLOROTHIAZIDE [Concomitant]
     Indication: HYPERTENSION
     Route: 048
     Dates: start: 20050106, end: 20060316
  4. ATENOLOL [Concomitant]
     Indication: HYPERTENSION
     Route: 048
     Dates: start: 20050928
  5. ACETYLSALICYLIC ACID SRT [Concomitant]
     Indication: THROMBOSIS PROPHYLAXIS
     Route: 048
     Dates: start: 20041119
  6. PLAVIX [Suspect]
     Indication: THROMBOSIS PROPHYLAXIS
     Route: 048
     Dates: start: 20041119

REACTIONS (3)
  - ANGINA PECTORIS [None]
  - CORONARY ARTERY RESTENOSIS [None]
  - STENT OCCLUSION [None]
